FAERS Safety Report 5977394-9 (Version None)
Quarter: 2008Q4

REPORT INFORMATION
  Report Type: 
  Country: None (occurrence: None)
  Receive Date: 20081201
  Receipt Date: 20081201
  Transmission Date: 20090506
  Serious: Yes (Other)
  Sender: FDA-Public Use
  Company Number: None

PATIENT
  Age: 56 Year
  Sex: Female
  Weight: 79.3795 kg

DRUGS (17)
  1. ISOSORBIDE MONONITRATE [Suspect]
     Indication: ANGINA PECTORIS
     Dosage: 60 MG ONCE A DAY PO
     Route: 048
     Dates: start: 20070416, end: 20081004
  2. LOPRESSOR [Concomitant]
  3. COZAAR [Concomitant]
  4. LASIX [Concomitant]
  5. ASPIRIN [Concomitant]
  6. KLOR-CON [Concomitant]
  7. FUROSEMIDE INTENSOL [Concomitant]
  8. PLAVIX [Concomitant]
  9. RANITIDINE [Concomitant]
  10. ACIPHEX [Concomitant]
  11. EFFEXOR [Concomitant]
  12. LITHIUM CARBONATE [Concomitant]
  13. SINGULAIR [Concomitant]
  14. ADVAIR INHALATION [Concomitant]
  15. ALBUTEROL [Concomitant]
  16. SPIRIVA [Concomitant]
  17. SYNTHROID [Concomitant]

REACTIONS (11)
  - BACK PAIN [None]
  - BLOOD PRESSURE DECREASED [None]
  - CONTUSION [None]
  - FALL [None]
  - FATIGUE [None]
  - HEADACHE [None]
  - JOINT SPRAIN [None]
  - LETHARGY [None]
  - MUSCLE SPASMS [None]
  - ROTATOR CUFF SYNDROME [None]
  - SYNCOPE [None]
